FAERS Safety Report 11668783 (Version 22)
Quarter: 2017Q4

REPORT INFORMATION
  Report Type: Spontaneous
  Country: US (occurrence: US)
  Receive Date: 20151027
  Receipt Date: 20171009
  Transmission Date: 20180320
  Serious: Yes (Death, Hospitalization, Other)
  Sender: FDA-Public Use
  Company Number: US-ACTELION PHARMACEUTICALS US, INC.-A-NJ2015-126181

PATIENT
  Age: 83 Year
  Sex: Male
  Weight: 61.22 kg

DRUGS (7)
  1. OPSUMIT [Suspect]
     Active Substance: MACITENTAN
     Indication: PULMONARY ARTERIAL HYPERTENSION
     Dosage: 10 MG, QD
     Route: 048
     Dates: start: 201403, end: 20170924
  2. OPSUMIT [Suspect]
     Active Substance: MACITENTAN
     Dosage: 10 UNK, UNK
     Route: 048
  3. ADCIRCA [Concomitant]
     Active Substance: TADALAFIL
     Dosage: 20 MG, QD
     Dates: start: 201005
  4. OXYGEN. [Concomitant]
     Active Substance: OXYGEN
  5. LORAZEPAM. [Suspect]
     Active Substance: LORAZEPAM
     Indication: PRODUCT USED FOR UNKNOWN INDICATION
     Dosage: UNK
     Route: 065
     Dates: start: 201705
  6. TYVASO [Concomitant]
     Active Substance: TREPROSTINIL
  7. REMODULIN [Suspect]
     Active Substance: TREPROSTINIL
     Indication: PRODUCT USED FOR UNKNOWN INDICATION
     Dosage: 63 NG/KG, PER MIN
     Route: 058
     Dates: start: 20151008

REACTIONS (47)
  - Disease progression [Fatal]
  - Blood creatinine increased [Unknown]
  - Cardiac failure [Unknown]
  - Fall [Unknown]
  - Epistaxis [Unknown]
  - Flatulence [Unknown]
  - Contusion [Unknown]
  - Dyspnoea exertional [Unknown]
  - Depression [Unknown]
  - Hypersomnia [Unknown]
  - Infusion site inflammation [Unknown]
  - Weight decreased [Unknown]
  - Dyspnoea [Unknown]
  - Pulmonary arterial hypertension [Unknown]
  - Right ventricular failure [Fatal]
  - Infusion site irritation [Unknown]
  - Change of bowel habit [Unknown]
  - Diarrhoea [Unknown]
  - Arthralgia [Unknown]
  - Oedema peripheral [Unknown]
  - Fluid retention [Unknown]
  - Nasal congestion [Unknown]
  - Heart rate increased [Unknown]
  - Loss of consciousness [Recovered/Resolved]
  - Dizziness [Unknown]
  - Anxiety [Unknown]
  - Hypotension [Unknown]
  - Somnolence [Unknown]
  - Urinary tract infection [Unknown]
  - Laboratory test abnormal [Unknown]
  - Gout [Unknown]
  - Arthritis [Unknown]
  - Syncope [Unknown]
  - Blood pressure decreased [Unknown]
  - Concomitant disease aggravated [Unknown]
  - Terminal state [Unknown]
  - Chronic kidney disease [Recovered/Resolved]
  - Nausea [Unknown]
  - Abnormal faeces [Unknown]
  - Abdominal discomfort [Unknown]
  - Device related infection [Unknown]
  - Anaemia [Unknown]
  - Eructation [Unknown]
  - Infusion site erythema [Unknown]
  - Pain in extremity [Unknown]
  - Abdominal distension [Unknown]
  - Nodule [Unknown]

NARRATIVE: CASE EVENT DATE: 201510
